FAERS Safety Report 18367270 (Version 11)
Quarter: 2024Q1

REPORT INFORMATION
  Report Type: Spontaneous
  Country: PT (occurrence: PT)
  Receive Date: 20201009
  Receipt Date: 20240129
  Transmission Date: 20240410
  Serious: Yes (Hospitalization, Disabling, Other)
  Sender: FDA-Public Use
  Company Number: PT-PFIZER INC-2020364406

PATIENT
  Age: 87 Year
  Sex: Male

DRUGS (3)
  1. QUETIAPINE [Suspect]
     Active Substance: QUETIAPINE
     Indication: Psychomotor hyperactivity
     Dosage: UNK
     Route: 065
  2. ACYCLOVIR [Suspect]
     Active Substance: ACYCLOVIR
     Indication: Meningoencephalitis herpetic
     Dosage: UNKNOWN DOSE
     Route: 048
  3. ACYCLOVIR [Suspect]
     Active Substance: ACYCLOVIR
     Indication: Rash vesicular

REACTIONS (11)
  - Acute kidney injury [Recovering/Resolving]
  - Drug level increased [Recovering/Resolving]
  - Renal impairment [Recovering/Resolving]
  - Rash vesicular [Unknown]
  - Meningoencephalitis herpetic [Unknown]
  - Tardive dyskinesia [Recovered/Resolved]
  - Dyskinesia [Recovering/Resolving]
  - Confusional state [Unknown]
  - Accidental overdose [Unknown]
  - Off label use [Unknown]
  - Product use in unapproved indication [Unknown]
